FAERS Safety Report 12788584 (Version 1)
Quarter: 2016Q3

REPORT INFORMATION
  Report Type: Report from Study
  Country: US (occurrence: US)
  Receive Date: 20160928
  Receipt Date: 20160928
  Transmission Date: 20161109
  Serious: Yes (Other)
  Sender: FDA-Public Use
  Company Number: US-MUNDIPHARMA DS AND PHARMACOVIGILANCE-USA-2016-0133826

PATIENT
  Sex: Female

DRUGS (2)
  1. OXYCONTIN [Suspect]
     Active Substance: OXYCODONE HYDROCHLORIDE
     Dosage: 12 MG, UNK
     Route: 048
  2. OXYCONTIN [Suspect]
     Active Substance: OXYCODONE HYDROCHLORIDE
     Indication: PAIN
     Dosage: 50 MG, TID
     Route: 048

REACTIONS (8)
  - Haemorrhage urinary tract [Unknown]
  - Panic attack [Unknown]
  - Off label use [Recovered/Resolved]
  - Bladder pain [Unknown]
  - Fatigue [Unknown]
  - Urinary retention [Unknown]
  - Sedation [Unknown]
  - Renal failure [Unknown]
